FAERS Safety Report 18973672 (Version 1)
Quarter: 2021Q1

REPORT INFORMATION
  Report Type: Spontaneous
  Country: US (occurrence: US)
  Receive Date: 20210305
  Receipt Date: 20210305
  Transmission Date: 20210420
  Serious: Yes (Hospitalization, Other)
  Sender: FDA-Public Use
  Company Number: US-PURDUE-USA-2021-0216573

PATIENT
  Sex: Male

DRUGS (4)
  1. MSIR TABLETS [Suspect]
     Active Substance: MORPHINE SULFATE
     Dosage: 270 MG, DAILY
     Route: 048
  2. MORPHINE SULFATE ORAL SOLUTION [Suspect]
     Active Substance: MORPHINE SULFATE
     Indication: PRODUCT USED FOR UNKNOWN INDICATION
     Route: 048
  3. ROXICODONE [Suspect]
     Active Substance: OXYCODONE HYDROCHLORIDE
     Indication: PRODUCT USED FOR UNKNOWN INDICATION
     Dosage: UNK
     Route: 065
  4. MSIR TABLETS [Suspect]
     Active Substance: MORPHINE SULFATE
     Indication: PRODUCT USED FOR UNKNOWN INDICATION
     Dosage: 30 MG, DAILY
     Route: 048

REACTIONS (6)
  - Drug dependence [Unknown]
  - Brain injury [Unknown]
  - Colitis [Unknown]
  - Coma [Unknown]
  - Cerebrovascular accident [Unknown]
  - Overdose [Unknown]

NARRATIVE: CASE EVENT DATE: 2012
